FAERS Safety Report 8365948-4 (Version None)
Quarter: 2012Q2

REPORT INFORMATION
  Report Type: 
  Country: None (occurrence: None)
  Receive Date: 20120517
  Receipt Date: 20120511
  Transmission Date: 20120825
  Serious: No
  Sender: FDA-Public Use
  Company Number: US-PFIZER INC-2012116836

PATIENT

DRUGS (2)
  1. NORVASC [Suspect]
     Dosage: UNK
     Route: 065
  2. CODEINE SULFATE [Suspect]
     Dosage: UNK
     Route: 065

REACTIONS (1)
  - DRUG HYPERSENSITIVITY [None]
